FAERS Safety Report 5913763-0 (Version None)
Quarter: 2008Q4

REPORT INFORMATION
  Report Type: 
  Country: None (occurrence: None)
  Receive Date: 20081009
  Receipt Date: 20081001
  Transmission Date: 20090506
  Serious: Yes (Hospitalization, Other)
  Sender: FDA-Public Use
  Company Number: JP-NOVOPROD-279320

PATIENT
  Age: 32 Year
  Sex: Female
  Weight: 77 kg

DRUGS (6)
  1. NOVOLIN R [Suspect]
     Indication: SUICIDE ATTEMPT
     Dosage: 300 IU, QD
     Dates: start: 20080902, end: 20080902
  2. NOVOLIN R [Suspect]
     Dosage: 20-12-10 IU, QD
     Dates: end: 20080901
  3. AMLODIPIN                          /00972401/ [Suspect]
     Indication: DRUG USE FOR UNKNOWN INDICATION
     Dosage: 75 MG, QD
     Dates: start: 20080902, end: 20080902
  4. MIGLITOL [Suspect]
     Indication: DRUG USE FOR UNKNOWN INDICATION
     Dosage: 1500 MG, QD
     Dates: start: 20080902, end: 20080902
  5. CONSTAN                            /00595201/ [Suspect]
     Indication: DRUG USE FOR UNKNOWN INDICATION
     Dosage: 4 MG, QD
     Dates: start: 20080902, end: 20080902
  6. NOVOLIN N [Concomitant]
     Indication: TYPE 2 DIABETES MELLITUS
     Dosage: 10 IU, QD
     Dates: end: 20080901

REACTIONS (3)
  - HYPOGLYCAEMIA [None]
  - INTENTIONAL OVERDOSE [None]
  - SUICIDE ATTEMPT [None]
